APPROVED DRUG PRODUCT: KETOCONAZOLE
Active Ingredient: KETOCONAZOLE
Strength: 2%
Dosage Form/Route: SHAMPOO;TOPICAL
Application: A076942 | Product #001 | TE Code: AB
Applicant: COSETTE PHARMACEUTICALS INC
Approved: Apr 11, 2005 | RLD: No | RS: No | Type: RX